FAERS Safety Report 9932635 (Version 1)
Quarter: 2014Q1

REPORT INFORMATION
  Report Type: Spontaneous
  Country: US (occurrence: US)
  Receive Date: 20140228
  Receipt Date: 20140228
  Transmission Date: 20141002
  Serious: No
  Sender: FDA-Public Use
  Company Number: US-GLAXOSMITHKLINE-A1017542A

PATIENT
  Age: 54 Year
  Sex: Male
  Weight: 70.5 kg

DRUGS (6)
  1. SUMATRIPTAN [Suspect]
     Indication: MIGRAINE
     Dosage: 6MG AS REQUIRED
     Route: 065
  2. SUMATRIPTAN AUTOINJECTOR [Suspect]
     Indication: MIGRAINE
     Route: 042
  3. TOPAMAX [Concomitant]
  4. TRIAZOLAM [Concomitant]
  5. SIMVASTATIN [Concomitant]
     Indication: BLOOD CHOLESTEROL INCREASED
  6. SUMATRIPTAN [Concomitant]
     Dosage: 100MG AS REQUIRED
     Route: 048

REACTIONS (3)
  - Drug ineffective [Unknown]
  - Product quality issue [Unknown]
  - Drug administration error [Unknown]
